FAERS Safety Report 5293857-6 (Version None)
Quarter: 2007Q2

REPORT INFORMATION
  Report Type: 
  Country: None (occurrence: None)
  Receive Date: 20070411
  Receipt Date: 20070409
  Transmission Date: 20071010
  Serious: Yes (Death, Hospitalization, Other)
  Sender: FDA-Public Use
  Company Number: US-MERCK-0701USA00315

PATIENT
  Age: 73 Year
  Sex: Female
  Weight: 54 kg

DRUGS (1)
  1. FOSAMAX [Suspect]
     Indication: OSTEOPOROSIS
     Route: 048
     Dates: start: 20030301

REACTIONS (10)
  - ASTHENIA [None]
  - CHEST PAIN [None]
  - DEATH [None]
  - DEHYDRATION [None]
  - LEG AMPUTATION [None]
  - MYOCARDIAL INFARCTION [None]
  - OSTEONECROSIS [None]
  - PULMONARY EMBOLISM [None]
  - RESPIRATORY FAILURE [None]
  - THROMBOSIS [None]
